FAERS Safety Report 9448770 (Version 2)
Quarter: 2013Q4

REPORT INFORMATION
  Report Type: Report from Study
  Country: US (occurrence: US)
  Receive Date: 20130808
  Receipt Date: 20131003
  Transmission Date: 20140711
  Serious: Yes (Hospitalization)
  Sender: FDA-Public Use
  Company Number: US-ACTELION-A-US2013-86637

PATIENT
  Age: 72 Year
  Sex: Female

DRUGS (10)
  1. TRACLEER [Suspect]
     Indication: PULMONARY ARTERIAL HYPERTENSION
     Dosage: 125 MG, BID
     Route: 048
     Dates: start: 2003
  2. SILDENAFIL [Concomitant]
  3. ADCIRCA [Concomitant]
     Dosage: 20 MG, OD
     Dates: start: 2012
  4. MIRAPEX [Concomitant]
     Dosage: 0.5 MG, OD
  5. TRAZODONE [Concomitant]
     Dosage: 100 MG, OD
     Dates: start: 2012
  6. IMURAN [Concomitant]
     Dosage: 50 MG, OD
     Dates: start: 2010
  7. TIROSINT [Concomitant]
     Dosage: 200 MCG, OD
     Dates: start: 2012
  8. VITAMIN D [Concomitant]
     Dosage: 50000 IU, WEEKLY
     Dates: start: 2012
  9. FAMOTIDINE [Concomitant]
     Dosage: 40 MG, OD
     Dates: start: 2012
  10. CALCITROL [Concomitant]
     Dosage: .5 MG, OD
     Dates: start: 2012

REACTIONS (9)
  - Shoulder operation [Recovered/Resolved]
  - Musculoskeletal pain [Recovering/Resolving]
  - Concomitant disease aggravated [Recovering/Resolving]
  - Joint injury [Recovered/Resolved]
  - Fall [Recovered/Resolved]
  - Drug dose omission [Unknown]
  - Dyspnoea [Not Recovered/Not Resolved]
  - Rhinorrhoea [Not Recovered/Not Resolved]
  - Echocardiogram abnormal [Unknown]
